FAERS Safety Report 13162052 (Version 1)
Quarter: 2017Q1

REPORT INFORMATION
  Report Type: Spontaneous
  Country: US (occurrence: US)
  Receive Date: 20170130
  Receipt Date: 20170130
  Transmission Date: 20170428
  Serious: No
  Sender: FDA-Public Use
  Company Number: US-PFIZER INC-2017034487

PATIENT
  Sex: Female

DRUGS (8)
  1. DOXYCYCLINE HYCLATE. [Suspect]
     Active Substance: DOXYCYCLINE HYCLATE
  2. DIOVAN [Suspect]
     Active Substance: VALSARTAN
  3. AMLODIPINE BESILATE [Suspect]
     Active Substance: AMLODIPINE BESYLATE
     Dosage: UNK
  4. LEVAQUIN [Suspect]
     Active Substance: LEVOFLOXACIN
  5. COZAAR [Suspect]
     Active Substance: LOSARTAN POTASSIUM
  6. VALIUM [Suspect]
     Active Substance: DIAZEPAM
  7. MELOXICAM. [Suspect]
     Active Substance: MELOXICAM
  8. CODEINE SULPHATE [Suspect]
     Active Substance: CODEINE SULFATE

REACTIONS (1)
  - Drug hypersensitivity [Unknown]
